FAERS Safety Report 26168531 (Version 1)
Quarter: 2025Q4

REPORT INFORMATION
  Report Type: Other
  Country: EU (occurrence: EU)
  Receive Date: 20251217
  Receipt Date: 20251217
  Transmission Date: 20260117
  Serious: Yes (Hospitalization, Congenital Anomaly, Other)
  Sender: MACLEODS
  Company Number: None

PATIENT

DRUGS (19)
  1. APIXABAN [Suspect]
     Active Substance: APIXABAN
     Indication: Product used for unknown indication
     Route: 064
  2. SILDENAFIL [Suspect]
     Active Substance: SILDENAFIL
     Indication: Product used for unknown indication
     Dosage: 20 MG
     Route: 064
  3. SILDENAFIL [Suspect]
     Active Substance: SILDENAFIL
     Dosage: CUMULATIVE DOSE 4680 MG
     Route: 064
     Dates: start: 20150105, end: 20150323
  4. SILDENAFIL [Suspect]
     Active Substance: SILDENAFIL
     Dosage: CUMULATIVE DOSE 3560 MG, 7.5. - 33. GESTATIONAL WEEK
     Route: 064
     Dates: start: 20150416, end: 20151010
  5. SILDENAFIL [Suspect]
     Active Substance: SILDENAFIL
     Dosage: CUMULATIVE DOSE 3560 MG, 7.5. - 33. GESTATIONAL WEEK
     Route: 064
  6. PREDNISOLONE [Suspect]
     Active Substance: PREDNISOLONE
     Indication: Product used for unknown indication
     Dosage: UNK
     Route: 064
     Dates: start: 20150727, end: 20150907
  7. PREDNISOLONE [Suspect]
     Active Substance: PREDNISOLONE
     Dosage: CUMULATIVE DOSE 890 MG, 7.5. - 33. GESTATIONAL WEEK
     Route: 064
     Dates: start: 20150416, end: 20151010
  8. AZATHIOPRINE [Suspect]
     Active Substance: AZATHIOPRINE
     Indication: Product used for unknown indication
     Dosage: CUMULATIVE DOSE 8900 MG   7.5. - 33. GESTATIONAL WEEK
     Route: 064
     Dates: start: 20150416, end: 20151010
  9. HYDROXYCHLOROQUINE [Suspect]
     Active Substance: HYDROXYCHLOROQUINE
     Indication: Systemic lupus erythematosus
     Dosage: CUMULATIVE DOSE 32000MG  9.3-33 GESTATIONAL WEEK
     Route: 064
     Dates: start: 20150428, end: 20151010
  10. HYDROXYCHLOROQUINE [Suspect]
     Active Substance: HYDROXYCHLOROQUINE
     Route: 064
     Dates: start: 20150727, end: 20150907
  11. OPSUMIT [Suspect]
     Active Substance: MACITENTAN
     Indication: Pulmonary arterial hypertension
     Dosage: 0. - 5.2. GESTATIONAL WEEK
     Route: 064
     Dates: start: 20150221, end: 20150430
  12. OPSUMIT [Suspect]
     Active Substance: MACITENTAN
     Dosage: 0. - 5.2. GESTATIONAL WEEK
     Route: 064
     Dates: start: 20141124, end: 20150323
  13. TINZAPARIN [Suspect]
     Active Substance: TINZAPARIN
     Indication: Pulmonary arterial hypertension
     Dosage: 20000 [IE/D ]
     Route: 064
     Dates: start: 20150416, end: 20151010
  14. TINZAPARIN [Suspect]
     Active Substance: TINZAPARIN
     Route: 064
     Dates: start: 20150408, end: 201510
  15. TREPROSTINIL [Suspect]
     Active Substance: TREPROSTINIL
     Indication: Product used for unknown indication
     Route: 064
  16. VENTAVIS [Suspect]
     Active Substance: ILOPROST
     Indication: Product used for unknown indication
     Route: 064
     Dates: end: 201505
  17. CALCIUM PHOSPHATE, DIBASIC, ANHYDROUS\FERROUS SUCCINATE\MAGNESIUM HYDR [Suspect]
     Active Substance: CALCIUM PHOSPHATE, DIBASIC, ANHYDROUS\FERROUS SUCCINATE\MAGNESIUM HYDROXIDE
     Indication: Prophylaxis of neural tube defect
     Dosage: 5.2. - 9.3. GESTATIONAL WEEK
     Route: 064
     Dates: start: 20150330, end: 20150428
  18. BETAMETHASONE [Suspect]
     Active Substance: BETAMETHASONE
     Indication: Maternal therapy to enhance foetal lung maturity
     Dosage: 29.4. - 29.5. GESTATIONAL WEEK
     Route: 064
     Dates: start: 20150916, end: 20150917
  19. ATOSIBAN [Suspect]
     Active Substance: ATOSIBAN
     Indication: Tocolysis
     Dosage: 33. - 33. GESTATIONAL WEEK
     Route: 064
     Dates: start: 20151010, end: 20151010

REACTIONS (15)
  - Bradycardia [Recovered/Resolved]
  - Osteochondrodysplasia [Unknown]
  - Cyanosis [Recovered/Resolved]
  - Hypotonia [Recovered/Resolved]
  - Hypotonia [Recovered/Resolved]
  - Multiple epiphyseal dysplasia [Not Recovered/Not Resolved]
  - Neonatal respiratory distress syndrome [Recovered/Resolved]
  - Posture abnormal [Unknown]
  - Premature baby [Unknown]
  - Congenital musculoskeletal disorder [Unknown]
  - Congenital musculoskeletal disorder [Unknown]
  - Foetal growth restriction [Unknown]
  - Skeletal dysplasia [Not Recovered/Not Resolved]
  - Brachydactyly [Not Recovered/Not Resolved]
  - Foetal exposure timing unspecified [Unknown]

NARRATIVE: CASE EVENT DATE: 20151010
